FAERS Safety Report 9708110 (Version 1)
Quarter: 2013Q4

REPORT INFORMATION
  Report Type: Spontaneous
  Country: US (occurrence: None)
  Receive Date: 20131122
  Receipt Date: 20131122
  Transmission Date: 20140711
  Serious: Yes (Disabling, Other)
  Sender: FDA-Public Use
  Company Number: None

PATIENT
  Age: 31 Day
  Sex: Female

DRUGS (1)
  1. BACTRIM [Suspect]
     Route: 048

REACTIONS (10)
  - Dyspepsia [None]
  - Oropharyngeal pain [None]
  - Heart rate increased [None]
  - Insomnia [None]
  - Skin exfoliation [None]
  - Pruritus [None]
  - Rash generalised [None]
  - Skin irritation [None]
  - Scab [None]
  - Dehydration [None]
